FAERS Safety Report 18969472 (Version 1)
Quarter: 2021Q1

REPORT INFORMATION
  Report Type: Spontaneous
  Country: JP (occurrence: JP)
  Receive Date: 20210304
  Receipt Date: 20210304
  Transmission Date: 20210420
  Serious: No
  Sender: FDA-Public Use
  Company Number: JP-LUPIN PHARMACEUTICALS INC.-2021-02532

PATIENT
  Age: 95 Year
  Sex: Male

DRUGS (4)
  1. ISONIAZID. [Concomitant]
     Active Substance: ISONIAZID
     Indication: MALE GENITAL TRACT TUBERCULOSIS
     Dosage: UNK
     Route: 065
  2. RIFAMPICIN [Concomitant]
     Active Substance: RIFAMPIN
     Indication: MALE GENITAL TRACT TUBERCULOSIS
     Dosage: UNK
     Route: 065
  3. PYRAZINAMIDE. [Concomitant]
     Active Substance: PYRAZINAMIDE
     Indication: MALE GENITAL TRACT TUBERCULOSIS
     Route: 065
  4. ETHAMBUTOL [Suspect]
     Active Substance: ETHAMBUTOL HYDROCHLORIDE
     Indication: MALE GENITAL TRACT TUBERCULOSIS
     Dosage: UNK
     Route: 065

REACTIONS (1)
  - Visual impairment [Unknown]
